FAERS Safety Report 5766149-6 (Version None)
Quarter: 2008Q2

REPORT INFORMATION
  Report Type: 
  Country: None (occurrence: None)
  Receive Date: 20080611
  Receipt Date: 20080530
  Transmission Date: 20081010
  Serious: Yes (Other)
  Sender: FDA-Public Use
  Company Number: US-PFIZER INC-2008047701

PATIENT
  Sex: Male

DRUGS (3)
  1. SERTRALINE [Suspect]
     Indication: ANXIETY
  2. SERTRALINE [Suspect]
     Indication: DEPRESSION
  3. STRATTERA [Suspect]
     Indication: ATTENTION DEFICIT/HYPERACTIVITY DISORDER

REACTIONS (3)
  - ABDOMINAL PAIN [None]
  - LETHARGY [None]
  - LIVER INJURY [None]
